FAERS Safety Report 5829669-1 (Version None)
Quarter: 2008Q3

REPORT INFORMATION
  Report Type: 
  Country: None (occurrence: None)
  Receive Date: 20080729
  Receipt Date: 20080717
  Transmission Date: 20090109
  Serious: Yes (Other)
  Sender: FDA-Public Use
  Company Number: 2008000902

PATIENT
  Age: 67 Year
  Sex: Female

DRUGS (3)
  1. ROGAINE [Suspect]
     Indication: ALOPECIA
     Dosage: 1 ML TWICE DAILY (2 IN 1 D), TOPICAL
     Route: 061
     Dates: start: 20071201
  2. URBASON (METHYLPREDNISOLONE) [Concomitant]
  3. CEFTRIAXONE [Concomitant]

REACTIONS (3)
  - ALOPECIA [None]
  - CONDITION AGGRAVATED [None]
  - DANDRUFF [None]
